FAERS Safety Report 9374977 (Version 1)
Quarter: 2013Q2

REPORT INFORMATION
  Report Type: Report from Study
  Country: FR (occurrence: FR)
  Receive Date: 20130628
  Receipt Date: 20130628
  Transmission Date: 20140414
  Serious: Yes (Hospitalization)
  Sender: FDA-Public Use
  Company Number: FR-009507513-1306FRA010479

PATIENT
  Age: 75 Year
  Sex: Female

DRUGS (10)
  1. SITAGLIPTIN PHOSPHATE [Suspect]
     Indication: TYPE 2 DIABETES MELLITUS
     Dosage: 200 MG, QD
     Route: 048
     Dates: start: 20100622, end: 20100921
  2. SITAGLIPTIN PHOSPHATE [Suspect]
     Dosage: 100 MG, QD
     Route: 048
     Dates: start: 20100922, end: 20120107
  3. SITAGLIPTIN PHOSPHATE [Suspect]
     Dosage: 100 MG, QD
     Route: 048
     Dates: start: 2012
  4. JANUMET [Concomitant]
     Indication: TYPE 2 DIABETES MELLITUS
     Dosage: 1 DF, QD
     Route: 048
     Dates: start: 20120107, end: 20120216
  5. JANUMET [Concomitant]
     Dosage: 2 DF, QD
     Route: 048
     Dates: start: 20120216, end: 2012
  6. METFORMIN [Concomitant]
     Indication: TYPE 2 DIABETES MELLITUS
     Dosage: 2000 MG, QD
     Route: 048
     Dates: start: 20100622, end: 20100922
  7. METFORMIN [Concomitant]
     Dosage: 3000 MG, QD
     Route: 048
     Dates: start: 20100922, end: 20101224
  8. METFORMIN [Concomitant]
     Dosage: 2000 MG, QD
     Route: 048
     Dates: start: 20120216
  9. GLUCOPHAGE [Concomitant]
     Indication: TYPE 2 DIABETES MELLITUS
     Dosage: 2000 MG, QD
     Route: 048
     Dates: start: 20101224, end: 20111022
  10. GLUCOPHAGE [Concomitant]
     Dosage: 3000 MG, QD
     Route: 048
     Dates: start: 20111022, end: 20120216

REACTIONS (3)
  - Hypoglycaemia [Recovered/Resolved]
  - Overdose [Recovered/Resolved]
  - Drug ineffective [Not Recovered/Not Resolved]
